FAERS Safety Report 26080971 (Version 1)
Quarter: 2025Q4

REPORT INFORMATION
  Report Type: Spontaneous
  Country: EU (occurrence: EU)
  Receive Date: 20251124
  Receipt Date: 20251124
  Transmission Date: 20260117
  Serious: Yes (Other)
  Sender: BOEHRINGER INGELHEIM
  Company Number: EU-SANDOZ-SDZ2025SI085310

PATIENT
  Age: 72 Year
  Sex: Female

DRUGS (3)
  1. DABIGATRAN [Suspect]
     Active Substance: DABIGATRAN
     Indication: Atrial fibrillation
  2. DABIGATRAN [Suspect]
     Active Substance: DABIGATRAN
  3. DABIGATRAN [Suspect]
     Active Substance: DABIGATRAN
     Dosage: 2 X 110 MG

REACTIONS (3)
  - Ureteric stenosis [Recovered/Resolved]
  - Retroperitoneal fibrosis [Recovered/Resolved]
  - Haematuria [Unknown]
